FAERS Safety Report 5890455-8 (Version None)
Quarter: 2008Q3

REPORT INFORMATION
  Report Type: 
  Country: None (occurrence: None)
  Receive Date: 20080922
  Receipt Date: 20080909
  Transmission Date: 20090109
  Serious: Yes (Death)
  Sender: FDA-Public Use
  Company Number: AT-JNJFOC-20080405948

PATIENT
  Sex: Female

DRUGS (5)
  1. INFLIXIMAB [Suspect]
     Indication: SYSTEMIC LUPUS ERYTHEMATOSUS
     Dosage: EIGHT INFUSIONS RECEIVED, DATES UNSPECIFIED
     Route: 042
  2. CYCLOPHOSPHAMIDE [Concomitant]
     Indication: PREMEDICATION
  3. STEROID PULSES [Concomitant]
     Indication: PREMEDICATION
  4. RITUXIMAB [Concomitant]
     Indication: PREMEDICATION
  5. MMF [Concomitant]
     Indication: PREMEDICATION

REACTIONS (1)
  - PNEUMONIA LEGIONELLA [None]
